FAERS Safety Report 13611545 (Version 1)
Quarter: 2017Q2

REPORT INFORMATION
  Report Type: Spontaneous
  Country: US (occurrence: US)
  Receive Date: 20170605
  Receipt Date: 20170605
  Transmission Date: 20170830
  Serious: Yes (Other)
  Sender: FDA-Public Use
  Company Number: US-PFIZER INC-2017240128

PATIENT
  Age: 42 Year
  Sex: Female

DRUGS (1)
  1. XELJANZ [Suspect]
     Active Substance: TOFACITINIB CITRATE
     Dosage: 5 MG, 2X/DAY

REACTIONS (16)
  - Musculoskeletal stiffness [Unknown]
  - Chest pain [Unknown]
  - Paraesthesia [Unknown]
  - Pain [Unknown]
  - Muscle spasms [Not Recovered/Not Resolved]
  - Muscular weakness [Unknown]
  - Fall [Unknown]
  - Drug intolerance [Unknown]
  - Sjogren^s syndrome [Unknown]
  - Fatigue [Unknown]
  - Stomatitis [Unknown]
  - Abdominal pain [Unknown]
  - Condition aggravated [Unknown]
  - Joint swelling [Unknown]
  - Pyrexia [Unknown]
  - Arthralgia [Unknown]
